FAERS Safety Report 13352215 (Version 1)
Quarter: 2017Q1

REPORT INFORMATION
  Report Type: Spontaneous
  Country: US (occurrence: US)
  Receive Date: 20170320
  Receipt Date: 20170320
  Transmission Date: 20170429
  Serious: No
  Sender: FDA-Public Use
  Company Number: US-SA-2016SA089405

PATIENT
  Age: 66 Year
  Sex: Female
  Weight: 205 kg

DRUGS (1)
  1. NASACORT ALLERGY 24HR [Suspect]
     Active Substance: TRIAMCINOLONE ACETONIDE
     Indication: MULTIPLE ALLERGIES
     Route: 065

REACTIONS (3)
  - Nasal discomfort [Recovered/Resolved]
  - Product odour abnormal [Unknown]
  - Lacrimation increased [Recovered/Resolved]
